FAERS Safety Report 9703428 (Version 1)
Quarter: 2013Q4

REPORT INFORMATION
  Report Type: Spontaneous
  Country: FR (occurrence: FR)
  Receive Date: 20131122
  Receipt Date: 20131122
  Transmission Date: 20140711
  Serious: Yes (Other)
  Sender: FDA-Public Use
  Company Number: 2013SP008088

PATIENT
  Age: 49 Year
  Sex: Male

DRUGS (8)
  1. VANCOMYCIN [Suspect]
     Indication: PRODUCT USED FOR UNKNOWN INDICATION
     Dates: start: 20130928
  2. GENTAMICIN [Suspect]
     Indication: PRODUCT USED FOR UNKNOWN INDICATION
  3. PIPERACILLIN [Concomitant]
     Dates: start: 20130928, end: 20131018
  4. TAZOBACTAM [Concomitant]
     Dates: start: 20130928, end: 20131018
  5. FUROSEMIDE [Concomitant]
     Dates: start: 20131005, end: 20131018
  6. FUROSEMIDE [Concomitant]
  7. HEPARIN [Concomitant]
     Dates: end: 20131018
  8. INEXIUM /01479302/ [Concomitant]
     Dates: start: 201309, end: 20131016

REACTIONS (1)
  - Renal tubular necrosis [Unknown]
